FAERS Safety Report 4912684-X (Version None)
Quarter: 2006Q1

REPORT INFORMATION
  Report Type: 
  Country: None (occurrence: None)
  Receive Date: 20060215
  Receipt Date: 20050607
  Transmission Date: 20060701
  Serious: Yes (Hospitalization)
  Sender: FDA-Public Use
  Company Number: US-MERCK-0506USA01078

PATIENT
  Age: 57 Year
  Sex: Male
  Weight: 100 kg

DRUGS (4)
  1. VIOXX [Suspect]
     Indication: ARTHRALGIA
     Route: 048
     Dates: start: 19990501, end: 20040901
  2. VIOXX [Suspect]
     Indication: BACK PAIN
     Route: 048
     Dates: start: 19990501, end: 20040901
  3. ASPIRIN [Concomitant]
     Route: 065
  4. VITAMINS (UNSPECIFIED) [Concomitant]
     Route: 065

REACTIONS (2)
  - JOINT INJURY [None]
  - MYOCARDIAL INFARCTION [None]
